FAERS Safety Report 4974835-0 (Version None)
Quarter: 2006Q1

REPORT INFORMATION
  Report Type: 
  Country: None (occurrence: None)
  Receive Date: 20060227
  Receipt Date: 20051222
  Transmission Date: 20060701
  Serious: Yes (Other)
  Sender: FDA-Public Use
  Company Number: 143756USA

PATIENT
  Age: 60 Year
  Sex: Female
  Weight: 107.5025 kg

DRUGS (6)
  1. TAMOXIFEN CITRATE [Suspect]
     Indication: BREAST CANCER
     Dosage: 20 MILLIGRAM DAILY ORAL
     Route: 048
     Dates: start: 20020101
  2. POTASSIUM CHLORIDE [Concomitant]
  3. DIOVAN [Concomitant]
  4. CLONIDINE [Concomitant]
  5. AMITRYPTILLINE [Concomitant]
  6. DYAZIDE [Concomitant]

REACTIONS (1)
  - DEEP VEIN THROMBOSIS [None]
